FAERS Safety Report 26073688 (Version 1)
Quarter: 2025Q4

REPORT INFORMATION
  Report Type: Spontaneous
  Country: CN (occurrence: CN)
  Receive Date: 20251121
  Receipt Date: 20251121
  Transmission Date: 20260118
  Serious: Yes (Hospitalization, Other)
  Sender: BAXTER
  Company Number: None

PATIENT
  Age: 68 Year
  Sex: Male
  Weight: 48 kg

DRUGS (2)
  1. CYCLOPHOSPHAMIDE [Suspect]
     Active Substance: CYCLOPHOSPHAMIDE
     Indication: Non-Hodgkin^s lymphoma
     Dosage: 1.1 G, QD
     Route: 041
     Dates: start: 20251015, end: 20251015
  2. PIRARUBICIN HYDROCHLORIDE [Suspect]
     Active Substance: PIRARUBICIN HYDROCHLORIDE
     Indication: Non-Hodgkin^s lymphoma
     Dosage: 75 MG, QD
     Route: 041
     Dates: start: 20251015, end: 20251015

REACTIONS (6)
  - Altered state of consciousness [Unknown]
  - Febrile neutropenia [Recovered/Resolved]
  - Pyrexia [Recovered/Resolved]
  - Chills [Unknown]
  - Vomiting [Unknown]
  - Cough [Unknown]

NARRATIVE: CASE EVENT DATE: 20251023
